FAERS Safety Report 10398323 (Version 3)
Quarter: 2014Q3

REPORT INFORMATION
  Report Type: Report from Study
  Country: GB (occurrence: GB)
  Receive Date: 20140821
  Receipt Date: 20140919
  Transmission Date: 20150326
  Serious: Yes (Hospitalization)
  Sender: FDA-Public Use
  Company Number: GB-JNJFOC-20140812897

PATIENT
  Age: 37 Year
  Sex: Male
  Weight: 115 kg

DRUGS (2)
  1. COCODAMOL [Concomitant]
     Active Substance: ACETAMINOPHEN\CODEINE PHOSPHATE
     Route: 065
     Dates: start: 20140604, end: 20140813
  2. STELARA [Suspect]
     Active Substance: USTEKINUMAB
     Indication: PSORIASIS
     Route: 058
     Dates: start: 20130812, end: 20140401

REACTIONS (2)
  - Migraine [Unknown]
  - Deafness [Unknown]

NARRATIVE: CASE EVENT DATE: 20140603
